FAERS Safety Report 20578427 (Version 1)
Quarter: 2022Q1

REPORT INFORMATION
  Report Type: Report from Study
  Country: US (occurrence: US)
  Receive Date: 20220310
  Receipt Date: 20220310
  Transmission Date: 20220423
  Serious: No
  Sender: FDA-Public Use
  Company Number: US-Ipsen Biopharmaceuticals, Inc.-2022-05869

PATIENT
  Sex: Male

DRUGS (1)
  1. SOMATULINE DEPOT [Suspect]
     Active Substance: LANREOTIDE ACETATE
     Indication: Small intestine carcinoma
     Dosage: 120MG/0.5ML
     Route: 058

REACTIONS (5)
  - Fatigue [Recovering/Resolving]
  - Rash [Recovering/Resolving]
  - Glucose tolerance impaired [Recovering/Resolving]
  - Product administered at inappropriate site [Unknown]
  - Off label use [Unknown]
